FAERS Safety Report 8725890 (Version 2)
Quarter: 2013Q1

REPORT INFORMATION
  Report Type: Spontaneous
  Country: US (occurrence: US)
  Receive Date: 20120816
  Receipt Date: 20130325
  Transmission Date: 20140127
  Serious: No
  Sender: FDA-Public Use
  Company Number: US-BIOGENIDEC-2012BI031023

PATIENT
  Age: 48 None
  Sex: Female

DRUGS (1)
  1. TYSABRI [Suspect]
     Indication: MULTIPLE SCLEROSIS
     Route: 042
     Dates: start: 20110607

REACTIONS (7)
  - Blood testosterone decreased [Unknown]
  - Fall [Recovered/Resolved]
  - Upper limb fracture [Recovered/Resolved]
  - Excoriation [Not Recovered/Not Resolved]
  - Blister [Not Recovered/Not Resolved]
  - Pain [Not Recovered/Not Resolved]
  - Libido decreased [Not Recovered/Not Resolved]
